FAERS Safety Report 6719144-4 (Version None)
Quarter: 2010Q2

REPORT INFORMATION
  Report Type: 
  Country: None (occurrence: None)
  Receive Date: 20100510
  Receipt Date: 20100510
  Transmission Date: 20101027
  Serious: No
  Sender: FDA-Public Use
  Company Number: None

PATIENT
  Sex: Female
  Weight: 62.2335 kg

DRUGS (3)
  1. TYSABRI [Suspect]
     Indication: MULTIPLE SCLEROSIS
     Dosage: 300MG 4-9-10 IV
     Route: 042
     Dates: start: 20100409
  2. ALEVE (CAPLET) [Concomitant]
  3. MEDROL DOSE PAC [Concomitant]

REACTIONS (5)
  - CONTUSION [None]
  - HAEMATOCHEZIA [None]
  - ORAL DISORDER [None]
  - PURPURA [None]
  - RASH ERYTHEMATOUS [None]
